FAERS Safety Report 17505804 (Version 1)
Quarter: 2020Q1

REPORT INFORMATION
  Report Type: Spontaneous
  Country: DK (occurrence: DK)
  Receive Date: 20200305
  Receipt Date: 20200305
  Transmission Date: 20200409
  Serious: Yes (Disabling)
  Sender: FDA-Public Use
  Company Number: PHHY2019DK160591

PATIENT
  Age: 72 Year
  Sex: Male
  Weight: 77 kg

DRUGS (2)
  1. CIPROFLOXACIN ^HEXAL^ [Suspect]
     Active Substance: CIPROFLOXACIN
     Dosage: 1000 MG, QD (STRYKE: 500 MG)
     Route: 048
     Dates: start: 20181119, end: 20181126
  2. CIPROFLOXACIN ^HEXAL^ [Suspect]
     Active Substance: CIPROFLOXACIN
     Indication: PNEUMONIA
     Dosage: 250 MG, QD (STYRKE: 250 MG)
     Route: 048
     Dates: start: 20181112, end: 20181120

REACTIONS (6)
  - Gait disturbance [Recovering/Resolving]
  - Tendon disorder [Recovering/Resolving]
  - Tendonitis [Recovering/Resolving]
  - Asthenia [Not Recovered/Not Resolved]
  - Balance disorder [Not Recovered/Not Resolved]
  - Tendon pain [Recovering/Resolving]

NARRATIVE: CASE EVENT DATE: 20181128
